FAERS Safety Report 24878844 (Version 4)
Quarter: 2025Q3

REPORT INFORMATION
  Report Type: Report from Study
  Country: EU (occurrence: EU)
  Receive Date: 20250123
  Receipt Date: 20250804
  Transmission Date: 20251021
  Serious: Yes (Other)
  Sender: PFIZER
  Company Number: EU-ROCHE-10000177019

PATIENT
  Age: 78 Year
  Sex: Male
  Weight: 70 kg

DRUGS (15)
  1. CARBOPLATIN [Suspect]
     Active Substance: CARBOPLATIN
     Indication: Small cell lung cancer extensive stage
     Dosage: 450 MG, WEEKLY
     Route: 065
     Dates: start: 20210825
  2. ATEZOLIZUMAB [Suspect]
     Active Substance: ATEZOLIZUMAB
     Indication: Small cell lung cancer extensive stage
     Route: 058
     Dates: start: 20210825
  3. ATEZOLIZUMAB [Suspect]
     Active Substance: ATEZOLIZUMAB
     Dosage: RECEIVED MOST RECENT DOSE (1875 MG) PRIOR TO SAE
     Route: 058
  4. ETOPOSIDE [Suspect]
     Active Substance: ETOPOSIDE
     Indication: Small cell lung cancer extensive stage
     Route: 042
     Dates: start: 20210825
  5. ETOPOSIDE [Suspect]
     Active Substance: ETOPOSIDE
     Route: 048
     Dates: start: 20210923
  6. TRAMADOL [Concomitant]
     Active Substance: TRAMADOL
     Dosage: UNK, 3X/DAY
     Dates: start: 20210615
  7. ACETAMINOPHEN [Concomitant]
     Active Substance: ACETAMINOPHEN
     Dosage: UNK, 3X/DAY
     Dates: start: 20210524
  8. ENALAPRIL [Concomitant]
     Active Substance: ENALAPRIL
     Dosage: UNK, 1X/DAY
     Dates: start: 20190704
  9. SIMVASTATIN [Concomitant]
     Active Substance: SIMVASTATIN
     Dosage: UNK UNK, 1X/DAY
     Dates: start: 20220418
  10. SALICYLIC ACID [Concomitant]
     Active Substance: SALICYLIC ACID
     Dosage: UNK, 1X/DAY
     Dates: start: 20220116
  11. CILOSTAZOL [Concomitant]
     Active Substance: CILOSTAZOL
     Dosage: UNK, 1X/DAY
     Dates: start: 20220116
  12. DEXAMETHASONE [Concomitant]
     Active Substance: DEXAMETHASONE
     Dosage: UNK, 1X/DAY
     Dates: start: 20220906
  13. INNOHEP [Concomitant]
     Active Substance: TINZAPARIN SODIUM
     Dosage: 8000 IU, 1X/DAY
     Dates: start: 20220518
  14. INNOHEP [Concomitant]
     Active Substance: TINZAPARIN SODIUM
     Dosage: 12000 IU, 1X/DAY
     Dates: start: 20220223
  15. AMOXICILLIN [Concomitant]
     Active Substance: AMOXICILLIN
     Indication: Prophylaxis
     Dosage: UNK, 3X/DAY
     Dates: start: 20241217, end: 20241223

REACTIONS (1)
  - Pneumonia [Recovered/Resolved]

NARRATIVE: CASE EVENT DATE: 20241211
